FAERS Safety Report 9805742 (Version 1)
Quarter: 2014Q1

REPORT INFORMATION
  Report Type: Spontaneous
  Country: US (occurrence: None)
  Receive Date: 20140108
  Receipt Date: 20140108
  Transmission Date: 20141002
  Serious: Yes (Hospitalization)
  Sender: FDA-Public Use
  Company Number: None

PATIENT
  Age: 55 Year
  Sex: Male
  Weight: 60.4 kg

DRUGS (2)
  1. TRAMADOL [Suspect]
     Indication: PAIN
     Route: 048
     Dates: start: 20130416, end: 20131025
  2. SERTRALINE [Suspect]
     Indication: DEPRESSION
     Dosage: AM
     Route: 048
     Dates: start: 20100503

REACTIONS (1)
  - Temporal lobe epilepsy [None]
